FAERS Safety Report 4363784-7 (Version None)
Quarter: 2004Q2

REPORT INFORMATION
  Report Type: 
  Country: None (occurrence: None)
  Receive Date: 20040521
  Receipt Date: 20040508
  Transmission Date: 20050107
  Serious: Yes (Death)
  Sender: FDA-Public Use
  Company Number: 2004AP02590

PATIENT
  Age: 76 Year
  Sex: Female

DRUGS (1)
  1. XYLOCAINE [Suspect]
     Indication: ARRHYTHMIA
     Dosage: 1000 MG IV
     Route: 042
     Dates: start: 20040406, end: 20040406

REACTIONS (3)
  - CARDIAC ARREST [None]
  - MEDICATION ERROR [None]
  - OVERDOSE [None]
